FAERS Safety Report 21330237 (Version 1)
Quarter: 2022Q3

REPORT INFORMATION
  Report Type: Report from Study
  Country: CO (occurrence: CO)
  Receive Date: 20220913
  Receipt Date: 20220913
  Transmission Date: 20221026
  Serious: Yes (Hospitalization, Other)
  Sender: FDA-Public Use
  Company Number: CO-ABBVIE-22K-036-4537213-00

PATIENT
  Sex: Female
  Weight: 88 kg

DRUGS (2)
  1. ZEMPLAR [Suspect]
     Active Substance: PARICALCITOL
     Indication: Hyperparathyroidism secondary
     Route: 042
     Dates: start: 20180427
  2. ZEMPLAR [Suspect]
     Active Substance: PARICALCITOL
     Indication: Chronic kidney disease

REACTIONS (12)
  - Intervertebral disc protrusion [Recovering/Resolving]
  - Hernia [Recovering/Resolving]
  - Sleep disorder [Recovering/Resolving]
  - Spinal pain [Recovering/Resolving]
  - Bacterial infection [Recovering/Resolving]
  - Gait disturbance [Recovering/Resolving]
  - Walking disability [Recovering/Resolving]
  - Spinal disorder [Recovering/Resolving]
  - Pain [Recovering/Resolving]
  - Blood parathyroid hormone abnormal [Recovering/Resolving]
  - Hyperhidrosis [Recovering/Resolving]
  - Dyspnoea [Recovering/Resolving]

NARRATIVE: CASE EVENT DATE: 20180101
